FAERS Safety Report 6154267-2 (Version None)
Quarter: 2009Q2

REPORT INFORMATION
  Report Type: 
  Country: None (occurrence: None)
  Receive Date: 20090410
  Receipt Date: 20090327
  Transmission Date: 20091009
  Serious: Yes (Other)
  Sender: FDA-Public Use
  Company Number: 200903AGG00863

PATIENT
  Age: 64 Year
  Sex: Male

DRUGS (4)
  1. TIROFIBAN HYDROCHLORIDE (TIROFIBAN HCL) [Suspect]
     Indication: ANTICOAGULANT THERAPY
     Dosage: DOSE AND DURATION NOT REPORTED
  2. CLOPIDOGREL BISULFATE (CLOPIDOGREL BISULFATE) [Suspect]
     Indication: ANTICOAGULANT THERAPY
  3. HEPARIN [Suspect]
     Indication: ANTICOAGULANT THERAPY
  4. ASPIRIN [Suspect]

REACTIONS (3)
  - CARDIAC FAILURE [None]
  - PNEUMONIA ASPIRATION [None]
  - POST PROCEDURAL HAEMORRHAGE [None]
